FAERS Safety Report 22330911 (Version 1)
Quarter: 2023Q2

REPORT INFORMATION
  Report Type: Report from Study
  Country: US (occurrence: US)
  Receive Date: 20230517
  Receipt Date: 20230517
  Transmission Date: 20230722
  Serious: Yes (Other)
  Sender: FDA-Public Use
  Company Number: US-ABBVIE-4768094

PATIENT
  Age: 63 Year
  Sex: Male

DRUGS (1)
  1. IMBRUVICA [Suspect]
     Active Substance: IBRUTINIB
     Indication: Chronic lymphocytic leukaemia
     Route: 048
     Dates: start: 20221128

REACTIONS (5)
  - Loss of consciousness [Unknown]
  - Depression [Unknown]
  - Hypertension [Unknown]
  - Palpitations [Unknown]
  - Tachypnoea [Unknown]

NARRATIVE: CASE EVENT DATE: 20230401
